FAERS Safety Report 12808291 (Version 1)
Quarter: 2016Q4

REPORT INFORMATION
  Report Type: Report from Study
  Country: BR (occurrence: BR)
  Receive Date: 20161004
  Receipt Date: 20161004
  Transmission Date: 20170207
  Serious: Yes (Other)
  Sender: FDA-Public Use
  Company Number: PHHY2016BR135660

PATIENT
  Sex: Female
  Weight: 23 kg

DRUGS (1)
  1. RITALIN LA [Suspect]
     Active Substance: METHYLPHENIDATE HYDROCHLORIDE
     Indication: DYSLEXIA
     Dosage: 1 DF, QD
     Route: 048

REACTIONS (4)
  - Agitation [Unknown]
  - Nervousness [Unknown]
  - Drug dependence [Unknown]
  - Product use issue [Unknown]
